FAERS Safety Report 9177325 (Version 2)
Quarter: 2013Q2

REPORT INFORMATION
  Report Type: Spontaneous
  Country: US (occurrence: US)
  Receive Date: 20130321
  Receipt Date: 20130419
  Transmission Date: 20140414
  Serious: No
  Sender: FDA-Public Use
  Company Number: US-009507513-1303USA001751

PATIENT
  Age: 48 Year
  Sex: Female
  Weight: 46.71 kg

DRUGS (7)
  1. PEGINTRON [Suspect]
     Dosage: (80MCG/0.5ML)
     Route: 058
  2. VICTRELIS [Suspect]
     Indication: HEPATITIS C
     Dosage: 800 MG, TID
     Route: 048
     Dates: start: 20130301
  3. NEURONTIN [Concomitant]
  4. TRAMADOL HYDROCHLORIDE [Concomitant]
  5. ZANTAC [Concomitant]
  6. RIBAPAK [Concomitant]
     Dosage: PAK 800/DAY
  7. PROMETHAZINE [Concomitant]
     Dosage: UNK

REACTIONS (4)
  - Nausea [Unknown]
  - Pain [Unknown]
  - Feeling hot [Unknown]
  - Adverse event [Unknown]
